FAERS Safety Report 6896260-8 (Version None)
Quarter: 2010Q3

REPORT INFORMATION
  Report Type: 
  Country: None (occurrence: None)
  Receive Date: 20100802
  Receipt Date: 20100708
  Transmission Date: 20110219
  Serious: Yes (Other)
  Sender: FDA-Public Use
  Company Number: A0873257A

PATIENT
  Sex: Female
  Weight: 70 kg

DRUGS (4)
  1. SERETIDE [Suspect]
     Indication: ASTHMA
     Dosage: 1PUFF TWICE PER DAY
     Route: 055
     Dates: start: 20100618
  2. AMBROXOL [Concomitant]
     Dosage: 5ML TWICE PER DAY
     Dates: start: 20100618
  3. LEVOCETIRIZINE DIHYDROCHLORIDE [Concomitant]
     Dosage: 5ML TWICE PER DAY
     Dates: start: 20100618
  4. ANTIBIOTIC [Concomitant]

REACTIONS (3)
  - ASTHMATIC CRISIS [None]
  - PHARYNGITIS [None]
  - PYREXIA [None]
